FAERS Safety Report 7660969-9 (Version None)
Quarter: 2011Q3

REPORT INFORMATION
  Report Type: 
  Country: None (occurrence: None)
  Receive Date: 20110805
  Receipt Date: 20100928
  Transmission Date: 20111222
  Serious: No
  Sender: FDA-Public Use
  Company Number: US-ABBOTT-10P-163-0674837-00

PATIENT
  Sex: Male
  Weight: 102.15 kg

DRUGS (5)
  1. QUINAPRIL HCL [Concomitant]
     Indication: HYPERTENSION
  2. BISOPROLOL FUMARATE [Concomitant]
     Indication: HYPERTENSION
  3. NIASPAN [Suspect]
     Dates: start: 20090101
  4. NIASPAN [Suspect]
     Indication: BLOOD CHOLESTEROL INCREASED
  5. WARFARIN SODIUM [Concomitant]
     Indication: PRODUCT USED FOR UNKNOWN INDICATION

REACTIONS (1)
  - BLOOD PRESSURE INCREASED [None]
